FAERS Safety Report 4480592-7 (Version None)
Quarter: 2004Q4

REPORT INFORMATION
  Report Type: 
  Country: None (occurrence: None)
  Receive Date: 20041019
  Receipt Date: 20041006
  Transmission Date: 20050328
  Serious: Yes (Hospitalization)
  Sender: FDA-Public Use
  Company Number: 2004237671GB

PATIENT
  Age: 54 Year
  Sex: Female
  Weight: 79 kg

DRUGS (4)
  1. FARMORUBICIN              (EPIRUBICIN HYDROCHLORIDE) [Suspect]
     Indication: BREAST CANCER
     Dates: start: 20040323
  2. CYCLOPHOSPHAMIDE [Suspect]
     Indication: BREAST CANCER
     Dates: start: 20040323
  3. PACLITAXEL [Suspect]
     Indication: BREAST CANCER
     Dates: start: 20040323
  4. ZOLEDRONIC ACID (ZOLEDRONATE) [Suspect]
     Indication: METASTASES TO BONE
     Dosage: 4 MG, 3 TIMES A WEEK, IV
     Route: 042
     Dates: start: 20040413

REACTIONS (8)
  - ABDOMINAL PAIN [None]
  - DIARRHOEA [None]
  - DYSPNOEA [None]
  - INFECTION [None]
  - NEUTROPENIC SEPSIS [None]
  - PAIN [None]
  - PYREXIA [None]
  - VOMITING [None]
